FAERS Safety Report 6247210-9 (Version None)
Quarter: 2009Q2

REPORT INFORMATION
  Report Type: 
  Country: None (occurrence: None)
  Receive Date: 20090624
  Receipt Date: 20090624
  Transmission Date: 20091009
  Serious: No
  Sender: FDA-Public Use
  Company Number: None

PATIENT
  Sex: Female
  Weight: 73.9363 kg

DRUGS (1)
  1. TEMIROLIMUS [Suspect]
     Indication: METASTATIC NEOPLASM
     Dosage: 25 MG ONCE IV
     Route: 042
     Dates: start: 20090528, end: 20090528

REACTIONS (5)
  - ABDOMINAL PAIN [None]
  - DYSPNOEA [None]
  - FLUSHING [None]
  - NECK PAIN [None]
  - RESTLESSNESS [None]
